FAERS Safety Report 6540241-0 (Version None)
Quarter: 2010Q1

REPORT INFORMATION
  Report Type: 
  Country: None (occurrence: None)
  Receive Date: 20100115
  Receipt Date: 20100106
  Transmission Date: 20100710
  Serious: Yes (Other)
  Sender: FDA-Public Use
  Company Number: KR-ASTRAZENECA-2010SE00549

PATIENT
  Age: 22 Year
  Sex: Female
  Weight: 77 kg

DRUGS (9)
  1. PROPOFOL [Suspect]
     Indication: INDUCTION OF ANAESTHESIA
     Dosage: 4 UG/ML DURING FIRST OPERATION
     Route: 042
  2. PROPOFOL [Suspect]
     Dosage: 4 UG/ML DURING SECOND OPERATION
     Route: 042
  3. FENTANYL [Suspect]
     Indication: INDUCTION OF ANAESTHESIA
     Route: 042
  4. FENTANYL [Suspect]
     Dosage: DOSE UNKNOWN DURING SECOND SURGERY
     Route: 042
  5. ROCURONIUM [Suspect]
     Indication: INDUCTION OF ANAESTHESIA
     Route: 042
  6. ROCURONIUM [Suspect]
     Dosage: DOSE UNKNOWN DURING SECOND SURGERY
     Route: 042
  7. IRBESARTAN [Concomitant]
  8. TRIFLUSAL [Concomitant]
  9. MIDAZOLAM HCL [Concomitant]
     Indication: ANAESTHETIC PREMEDICATION
     Route: 048

REACTIONS (1)
  - ATELECTASIS [None]
